FAERS Safety Report 14098035 (Version 4)
Quarter: 2018Q1

REPORT INFORMATION
  Report Type: Other
  Country: US (occurrence: US)
  Receive Date: 20171017
  Receipt Date: 20180111
  Transmission Date: 20180508
  Serious: Yes (Hospitalization)
  Sender: FDA-Public Use
  Company Number: US-ACORDA-ACO_141521_2017

PATIENT
  Age: 62 Year
  Sex: Female

DRUGS (13)
  1. BENTYL [Concomitant]
     Active Substance: DICYCLOMINE HYDROCHLORIDE
     Indication: PRODUCT USED FOR UNKNOWN INDICATION
     Dosage: UNK
     Route: 065
  2. AVONEX [Concomitant]
     Active Substance: INTERFERON BETA-1A
     Indication: MULTIPLE SCLEROSIS
     Dosage: UNK
     Route: 065
     Dates: start: 1995, end: 201608
  3. AMPYRA [Suspect]
     Active Substance: DALFAMPRIDINE
     Indication: MULTIPLE SCLEROSIS
     Dosage: 10 MG, BID
     Route: 048
     Dates: start: 2010
  4. REBIF [Suspect]
     Active Substance: INTERFERON BETA-1A
     Indication: MULTIPLE SCLEROSIS
     Dosage: 44 MCG, 3X/WK
     Route: 058
     Dates: start: 201611
  5. VALSARTAN. [Concomitant]
     Active Substance: VALSARTAN
     Indication: MULTIPLE SCLEROSIS
     Dosage: 80 MG, QD
     Route: 048
  6. AMPYRA [Suspect]
     Active Substance: DALFAMPRIDINE
     Indication: GAIT DISTURBANCE
     Dosage: 10 MG, BID
     Route: 048
     Dates: start: 20160802
  7. AMPYRA [Suspect]
     Active Substance: DALFAMPRIDINE
     Dosage: 10 MG, Q 12 HRS
     Route: 048
     Dates: start: 20150930
  8. TIZANIDINE. [Suspect]
     Active Substance: TIZANIDINE
     Indication: MULTIPLE SCLEROSIS
     Dosage: 4 MG, Q 8 HRS PRN
     Route: 048
  9. TRAMADOL. [Concomitant]
     Active Substance: TRAMADOL
     Indication: PRODUCT USED FOR UNKNOWN INDICATION
     Dosage: UNK
     Route: 065
  10. PROVIGIL [Concomitant]
     Active Substance: MODAFINIL
     Indication: MULTIPLE SCLEROSIS
     Dosage: 200 MG, QD
     Route: 048
  11. PROPRANOLOL [Concomitant]
     Active Substance: PROPRANOLOL HYDROCHLORIDE
     Indication: MULTIPLE SCLEROSIS
     Dosage: 60 MG, QD
     Route: 048
  12. HEPARIN [Concomitant]
     Active Substance: HEPARIN SODIUM
     Indication: PRODUCT USED FOR UNKNOWN INDICATION
     Dosage: UNK
     Route: 065
  13. DICLOFENAC [Concomitant]
     Active Substance: DICLOFENAC
     Indication: MULTIPLE SCLEROSIS
     Dosage: 100 MG, HS
     Route: 048

REACTIONS (13)
  - Decreased appetite [Recovered/Resolved]
  - Injection site reaction [Not Recovered/Not Resolved]
  - Memory impairment [Unknown]
  - Escherichia urinary tract infection [Recovered/Resolved]
  - Condition aggravated [Recovering/Resolving]
  - Loss of personal independence in daily activities [Recovering/Resolving]
  - Chills [Not Recovered/Not Resolved]
  - Drug dose omission [Unknown]
  - Lumbar spinal stenosis [Recovering/Resolving]
  - Wound dehiscence [Recovering/Resolving]
  - Spinal claudication [Recovering/Resolving]
  - Wound infection [Recovered/Resolved]
  - Deep vein thrombosis [Recovered/Resolved]

NARRATIVE: CASE EVENT DATE: 2016
